FAERS Safety Report 25452599 (Version 2)
Quarter: 2025Q3

REPORT INFORMATION
  Report Type: Spontaneous
  Country: JP (occurrence: JP)
  Receive Date: 20250618
  Receipt Date: 20250728
  Transmission Date: 20251021
  Serious: No
  Sender: MYLAN
  Company Number: JP-MYLANLABS-2025M1050207

PATIENT
  Sex: Female

DRUGS (1)
  1. EPIPEN [Suspect]
     Active Substance: EPINEPHRINE
     Indication: Product used for unknown indication

REACTIONS (2)
  - Product quality issue [Unknown]
  - Liquid product physical issue [Unknown]
